FAERS Safety Report 10223536 (Version 10)
Quarter: 2015Q1

REPORT INFORMATION
  Report Type: Report from Study
  Country: CN (occurrence: CN)
  Receive Date: 20140609
  Receipt Date: 20150312
  Transmission Date: 20150720
  Serious: Yes (Hospitalization)
  Sender: FDA-Public Use
  Company Number: CN-ROCHE-1411667

PATIENT
  Age: 24 Year
  Sex: Male
  Weight: 100 kg

DRUGS (60)
  1. CYCLOPHOSPHAMIDE. [Suspect]
     Active Substance: CYCLOPHOSPHAMIDE
     Indication: DIFFUSE LARGE B-CELL LYMPHOMA
     Dosage: MOST RECENT DOSE 08/MAY/2014
     Route: 042
     Dates: start: 20140508
  2. PREDNISOLONE. [Suspect]
     Active Substance: PREDNISOLONE
     Indication: DIFFUSE LARGE B-CELL LYMPHOMA
     Dosage: DATE OF MOST RECENT DOSE (100 MG) PRIOR TO AE ONSET : 11/MAY/2014.
     Route: 048
     Dates: start: 20140508
  3. LEVOFLOXACIN. [Concomitant]
     Active Substance: LEVOFLOXACIN
     Route: 065
     Dates: start: 20140429, end: 20140512
  4. SODIUM CHLORIDE. [Concomitant]
     Active Substance: SODIUM CHLORIDE
     Route: 065
     Dates: start: 20140508, end: 20140512
  5. FUROSEMIDE. [Concomitant]
     Active Substance: FUROSEMIDE
     Route: 065
     Dates: start: 20140522, end: 20140522
  6. GLUCOSE [Concomitant]
     Active Substance: DEXTROSE
     Route: 065
     Dates: start: 20140504, end: 20140504
  7. PARACETAMOL [Concomitant]
     Active Substance: ACETAMINOPHEN
     Route: 065
     Dates: start: 20140507, end: 20140522
  8. AMINO ACID [Concomitant]
     Route: 065
     Dates: start: 20140425, end: 20140504
  9. SODIUM BICARBONATE. [Concomitant]
     Active Substance: SODIUM BICARBONATE
     Indication: ASCITES
     Route: 065
     Dates: start: 20140522, end: 20140523
  10. CEFMINOX SODIUM [Concomitant]
     Active Substance: CEFMINOX SODIUM
     Indication: OROPHARYNGEAL PAIN
     Route: 065
     Dates: start: 20140529, end: 20140606
  11. POTASSIUM CHLORIDE. [Concomitant]
     Active Substance: POTASSIUM CHLORIDE
     Route: 065
     Dates: start: 20140522, end: 20140522
  12. OBINUTUZUMAB [Suspect]
     Active Substance: OBINUTUZUMAB
     Indication: DIFFUSE LARGE B-CELL LYMPHOMA
     Dosage: DATE OF MOST RECENT DOSE (VOLUME : 250 ML AND DOSE CONCENTRATION: 4 MG/ML) PRIOR TO AE ONSET : 21/MA
     Route: 042
     Dates: start: 20140507, end: 20140521
  13. SODIUM CHLORIDE. [Concomitant]
     Active Substance: SODIUM CHLORIDE
     Route: 065
     Dates: start: 20140508, end: 20140508
  14. LOPERAMIDE HYDROCHLORIDE. [Concomitant]
     Active Substance: LOPERAMIDE HYDROCHLORIDE
     Indication: DIARRHOEA
     Route: 065
     Dates: start: 20140430, end: 20140509
  15. MATRINE [Concomitant]
     Route: 065
     Dates: start: 20140507, end: 20140515
  16. RAMOSETRON HYDROCHLORIDE [Concomitant]
     Active Substance: RAMOSETRON HYDROCHLORIDE
     Route: 065
     Dates: start: 20140522, end: 20140522
  17. PANTOPRAZOLE SODIUM [Concomitant]
     Active Substance: PANTOPRAZOLE SODIUM
     Route: 065
     Dates: start: 20140520, end: 20140523
  18. PARACETAMOL [Concomitant]
     Active Substance: ACETAMINOPHEN
     Route: 065
     Dates: start: 20140507, end: 20140522
  19. FLUCONAZOLE. [Concomitant]
     Active Substance: FLUCONAZOLE
     Route: 065
     Dates: start: 20140529, end: 20140606
  20. SODIUM CHLORIDE. [Concomitant]
     Active Substance: SODIUM CHLORIDE
     Route: 065
     Dates: start: 20140429, end: 20140512
  21. POTASSIUM CHLORIDE. [Concomitant]
     Active Substance: POTASSIUM CHLORIDE
     Route: 065
     Dates: start: 20140504, end: 20140515
  22. POTASSIUM CHLORIDE. [Concomitant]
     Active Substance: POTASSIUM CHLORIDE
     Route: 065
     Dates: start: 20140425, end: 20140430
  23. POTASSIUM ASPARTATE/MAGNESIUM ASPARTATE/SORBITOL [Concomitant]
     Indication: ASCITES
     Route: 065
     Dates: start: 20140616, end: 20140619
  24. GLUTAMINE [Concomitant]
     Active Substance: GLUTAMINE
     Route: 065
     Dates: start: 20140618, end: 20140619
  25. OMEPRAZOLE. [Concomitant]
     Active Substance: OMEPRAZOLE
     Route: 065
     Dates: start: 20140425, end: 20140515
  26. SODIUM CHLORIDE. [Concomitant]
     Active Substance: SODIUM CHLORIDE
     Route: 065
     Dates: start: 20140514, end: 20140514
  27. SODIUM CHLORIDE. [Concomitant]
     Active Substance: SODIUM CHLORIDE
     Route: 065
     Dates: start: 20140426, end: 20140429
  28. GENTAMYCIN SULFATE [Concomitant]
     Active Substance: GENTAMICIN SULFATE
     Route: 065
     Dates: start: 20140430, end: 20140509
  29. BACILLUS LICHENFORMIS [Concomitant]
     Route: 065
     Dates: start: 20140430, end: 20140509
  30. POTASSIUM CHLORIDE. [Concomitant]
     Active Substance: POTASSIUM CHLORIDE
     Route: 065
     Dates: start: 20140522, end: 20140522
  31. GLUCOSE [Concomitant]
     Active Substance: DEXTROSE
     Route: 065
     Dates: start: 20140425, end: 20140430
  32. LEVOCARNITINE. [Concomitant]
     Active Substance: LEVOCARNITINE
     Route: 065
     Dates: start: 20140522, end: 20140522
  33. RAMOSETRON HYDROCHLORIDE [Concomitant]
     Active Substance: RAMOSETRON HYDROCHLORIDE
     Indication: VOMITING
     Route: 065
     Dates: start: 20140507, end: 20140507
  34. ALLOPURINOL. [Concomitant]
     Active Substance: ALLOPURINOL
     Route: 065
     Dates: start: 20140522, end: 20140523
  35. POTASSIUM CHLORIDE. [Concomitant]
     Active Substance: POTASSIUM CHLORIDE
     Indication: ASCITES
     Route: 065
     Dates: start: 20140603, end: 20140709
  36. METHYLPREDNISOLONE SODIUM SUCCINATE. [Concomitant]
     Active Substance: METHYLPREDNISOLONE SODIUM SUCCINATE
     Indication: ASCITES
     Route: 065
     Dates: start: 20140602, end: 20140703
  37. DOXORUBICIN [Suspect]
     Active Substance: DOXORUBICIN
     Indication: DIFFUSE LARGE B-CELL LYMPHOMA
     Dosage: MOST RECENT DOSE PRIOR TO TUMOR LYSIS SYNDROME: 08/MAY/2014.
     Route: 042
     Dates: start: 20140508
  38. VINCRISTINE [Suspect]
     Active Substance: VINCRISTINE
     Indication: DIFFUSE LARGE B-CELL LYMPHOMA
     Dosage: MOST RECENT DOSE PRIOR TO TUMOR LYSIS SYNDROME: 08/MAY/2014.
     Route: 040
     Dates: start: 20140508
  39. AMINO ACID [Concomitant]
     Route: 065
     Dates: start: 20140617, end: 20140619
  40. SODIUM CHLORIDE. [Concomitant]
     Active Substance: SODIUM CHLORIDE
     Route: 065
     Dates: start: 20140522, end: 20140522
  41. DIXIPAN [Concomitant]
     Indication: SEDATION
     Route: 065
     Dates: start: 20140430, end: 20140504
  42. SPIRONOLACTONE. [Concomitant]
     Active Substance: SPIRONOLACTONE
     Indication: POLYURIA
  43. INTRALIPID [Concomitant]
     Active Substance: EGG PHOSPHOLIPIDS\GLYCERIN\SOYBEAN OIL
     Route: 065
     Dates: start: 20140425, end: 20140504
  44. MATRINE [Concomitant]
     Route: 065
     Dates: start: 20140522, end: 20140522
  45. LEVOCARNITINE. [Concomitant]
     Active Substance: LEVOCARNITINE
     Route: 065
     Dates: start: 20140507, end: 20140515
  46. CALCIUM GLUCONATE. [Concomitant]
     Active Substance: CALCIUM GLUCONATE
     Route: 065
     Dates: start: 20140425, end: 20140430
  47. FILGRASTIM [Concomitant]
     Active Substance: FILGRASTIM
     Indication: BONE MARROW FAILURE
     Route: 065
     Dates: start: 20140520, end: 20140619
  48. FUROSEMIDE. [Concomitant]
     Active Substance: FUROSEMIDE
     Indication: POLYURIA
     Route: 065
     Dates: start: 20140430, end: 20140514
  49. GLUCOSE [Concomitant]
     Active Substance: DEXTROSE
     Route: 065
     Dates: start: 20140426, end: 20140429
  50. RAMOSETRON HYDROCHLORIDE [Concomitant]
     Active Substance: RAMOSETRON HYDROCHLORIDE
     Route: 065
     Dates: start: 20140514, end: 20140514
  51. SODIUM BICARBONATE. [Concomitant]
     Active Substance: SODIUM BICARBONATE
     Indication: HYPERCHLORHYDRIA
     Route: 065
     Dates: start: 20140514, end: 20140514
  52. SODIUM BICARBONATE. [Concomitant]
     Active Substance: SODIUM BICARBONATE
     Route: 065
     Dates: start: 20140602, end: 20140709
  53. SPIRONOLACTONE. [Concomitant]
     Active Substance: SPIRONOLACTONE
     Indication: OEDEMA
     Route: 065
     Dates: start: 20140522, end: 20140522
  54. LORATADINE. [Concomitant]
     Active Substance: LORATADINE
     Route: 065
     Dates: start: 20140507, end: 20140522
  55. PEGFILGRASTIM [Concomitant]
     Active Substance: PEGFILGRASTIM
     Indication: BONE MARROW FAILURE
     Route: 065
     Dates: start: 20140522, end: 20140522
  56. SODIUM BICARBONATE. [Concomitant]
     Active Substance: SODIUM BICARBONATE
     Indication: ASCITES
     Route: 065
     Dates: start: 20140602, end: 20140709
  57. METHYLPREDNISOLONE SODIUM SUCCINATE. [Concomitant]
     Active Substance: METHYLPREDNISOLONE SODIUM SUCCINATE
     Indication: SEIZURE
  58. DOXOFYLLINE [Concomitant]
     Active Substance: DOXOFYLLINE
     Indication: ASCITES
     Route: 065
     Dates: start: 20140602, end: 20140619
  59. DOXOFYLLINE [Concomitant]
     Active Substance: DOXOFYLLINE
     Indication: SEIZURE
  60. TROPISETRON HCL [Concomitant]
     Indication: PROPHYLAXIS
     Route: 065
     Dates: start: 20140608, end: 20140610

REACTIONS (5)
  - Pneumonia [Recovering/Resolving]
  - Peritonitis [Not Recovered/Not Resolved]
  - Renal failure [Recovered/Resolved]
  - Tumour lysis syndrome [Recovered/Resolved]
  - Seizure [Recovered/Resolved]

NARRATIVE: CASE EVENT DATE: 20140508
